FAERS Safety Report 16304822 (Version 2)
Quarter: 2019Q2

REPORT INFORMATION
  Report Type: Spontaneous
  Country: CZ (occurrence: CZ)
  Receive Date: 20190513
  Receipt Date: 20190606
  Transmission Date: 20190711
  Serious: Yes (Other)
  Sender: FDA-Public Use
  Company Number: CZ-SA-2019SA101021

PATIENT
  Age: 63 Year
  Sex: Male

DRUGS (8)
  1. BETALOC ZOK [Concomitant]
     Active Substance: METOPROLOL SUCCINATE
  2. RAMIPRIL ACTAVIS [Concomitant]
     Active Substance: RAMIPRIL
  3. ROSUVASTATIN. [Concomitant]
     Active Substance: ROSUVASTATIN
  4. NITROGLYCERIN. [Concomitant]
     Active Substance: NITROGLYCERIN
  5. COMBAIR [IPRATROPIUM BROMIDE;SALBUTAMOL SULFATE] [Concomitant]
  6. ALIROCUMAB [Suspect]
     Active Substance: ALIROCUMAB
  7. GODASAL [Concomitant]
     Active Substance: ASPIRIN\GLYCINE
  8. OMEPRAZOL STADA [Concomitant]
     Active Substance: OMEPRAZOLE

REACTIONS (1)
  - Cataract [Recovered/Resolved]

NARRATIVE: CASE EVENT DATE: 20190311
